FAERS Safety Report 25844587 (Version 1)
Quarter: 2025Q3

REPORT INFORMATION
  Report Type: Report from Study
  Country: KR (occurrence: KR)
  Receive Date: 20250925
  Receipt Date: 20250925
  Transmission Date: 20251020
  Serious: Yes (Hospitalization)
  Sender: ABBVIE
  Company Number: KR-ABBVIE-6474028

PATIENT
  Age: 76 Year
  Sex: Male

DRUGS (14)
  1. VENCLEXTA [Suspect]
     Active Substance: VENETOCLAX
     Indication: Acute myeloid leukaemia
     Route: 048
     Dates: start: 20231019, end: 20231019
  2. VENCLEXTA [Suspect]
     Active Substance: VENETOCLAX
     Indication: Acute myeloid leukaemia
     Route: 048
     Dates: start: 20240307, end: 20240313
  3. VENCLEXTA [Suspect]
     Active Substance: VENETOCLAX
     Indication: Acute myeloid leukaemia
     Route: 048
     Dates: start: 20231020, end: 20231020
  4. VENCLEXTA [Suspect]
     Active Substance: VENETOCLAX
     Indication: Acute myeloid leukaemia
     Route: 048
     Dates: start: 20231214, end: 20240102
  5. VENCLEXTA [Suspect]
     Active Substance: VENETOCLAX
     Indication: Acute myeloid leukaemia
     Route: 048
     Dates: start: 20240201, end: 20240214
  6. VENCLEXTA [Suspect]
     Active Substance: VENETOCLAX
     Indication: Acute myeloid leukaemia
     Route: 048
     Dates: start: 20231021, end: 20231021
  7. VENCLEXTA [Suspect]
     Active Substance: VENETOCLAX
     Indication: Acute myeloid leukaemia
     Route: 048
     Dates: start: 20231022, end: 20231211
  8. DACOGEN [Concomitant]
     Active Substance: DECITABINE
     Indication: Acute myeloid leukaemia
     Route: 042
     Dates: start: 20231215, end: 20231219
  9. DACOGEN [Concomitant]
     Active Substance: DECITABINE
     Indication: Acute myeloid leukaemia
     Route: 042
     Dates: start: 20231019, end: 20231023
  10. Epectra [Concomitant]
     Indication: Infection prophylaxis
     Route: 048
     Dates: start: 20231214
  11. NOXAFIL [Concomitant]
     Active Substance: POSACONAZOLE
     Indication: Infection prophylaxis
     Dosage: GASTRO RESISTANT 100 MG
     Route: 048
     Dates: start: 20231020, end: 20231213
  12. NOXAFIL [Concomitant]
     Active Substance: POSACONAZOLE
     Indication: Infection prophylaxis
     Dosage: GASTRO RESISTANT 100 MG
     Route: 048
     Dates: start: 20231019, end: 20231019
  13. Debikin [Concomitant]
     Indication: Acute myeloid leukaemia
     Route: 042
     Dates: start: 20240201, end: 20240205
  14. Debikin [Concomitant]
     Indication: Acute myeloid leukaemia
     Route: 042
     Dates: start: 20240307, end: 20240311

REACTIONS (1)
  - Proctitis [Recovered/Resolved]

NARRATIVE: CASE EVENT DATE: 20240115
